FAERS Safety Report 16886404 (Version 1)
Quarter: 2019Q4

REPORT INFORMATION
  Report Type: Spontaneous
  Country: US (occurrence: US)
  Receive Date: 20191004
  Receipt Date: 20191004
  Transmission Date: 20200122
  Serious: Yes (Life-Threatening)
  Sender: FDA-Public Use
  Company Number: None

PATIENT
  Age: 65 Year
  Sex: Female
  Weight: 55.6 kg

DRUGS (1)
  1. RITUXIMAB. [Suspect]
     Active Substance: RITUXIMAB
     Indication: B-CELL LYMPHOMA
     Dosage: ?          OTHER FREQUENCY:Q2WK FOR 4 DOSES;?
     Route: 041
     Dates: start: 20190702, end: 20190723

REACTIONS (3)
  - Clumsiness [None]
  - Hypoaesthesia [None]
  - Hemiparesis [None]

NARRATIVE: CASE EVENT DATE: 20190823
